FAERS Safety Report 8909624 (Version 3)
Quarter: 2013Q1

REPORT INFORMATION
  Report Type: Spontaneous
  Country: JP (occurrence: JP)
  Receive Date: 20121115
  Receipt Date: 20130108
  Transmission Date: 20140127
  Serious: Yes (Other)
  Sender: FDA-Public Use
  Company Number: JP-ROCHE-1155472

PATIENT
  Age: 80 Year
  Sex: Female
  Weight: 45 kg

DRUGS (9)
  1. HERCEPTIN [Suspect]
     Indication: BREAST CANCER METASTATIC
     Route: 041
     Dates: start: 20101203, end: 20101203
  2. HERCEPTIN [Suspect]
     Route: 041
     Dates: start: 20101210, end: 20110218
  3. HERCEPTIN [Suspect]
     Route: 041
     Dates: start: 20121107, end: 20121107
  4. XELODA [Suspect]
     Indication: BREAST CANCER METASTATIC
     Route: 048
     Dates: start: 20110328, end: 20121104
  5. ANASTROZOLE [Concomitant]
     Route: 065
     Dates: start: 20070316, end: 20101209
  6. ZOLEDRONIC ACID [Concomitant]
     Indication: CANCER PAIN
     Route: 065
     Dates: start: 20070316, end: 20110204
  7. EXEMESTANE [Concomitant]
     Route: 065
     Dates: start: 20101210, end: 20110327
  8. TYKERB [Concomitant]
     Route: 065
     Dates: start: 20110328, end: 20121104
  9. PYDOXAL [Concomitant]
     Route: 048
     Dates: start: 20110330

REACTIONS (4)
  - Stress cardiomyopathy [Recovered/Resolved]
  - Infusion related reaction [Recovered/Resolved]
  - Prinzmetal angina [Recovered/Resolved]
  - Anaemia [Recovered/Resolved]
